FAERS Safety Report 8604361-9 (Version None)
Quarter: 2012Q3

REPORT INFORMATION
  Report Type: 
  Country: None (occurrence: None)
  Receive Date: 20120820
  Receipt Date: 20120809
  Transmission Date: 20120928
  Serious: Yes (Hospitalization, Disabling)
  Sender: FDA-Public Use
  Company Number: US-BAYER-2010-001751

PATIENT
  Age: 34 Year
  Sex: Female
  Weight: 63.039 kg

DRUGS (2)
  1. CHOLESTYRAMINE [Concomitant]
     Dosage: UNK
     Dates: start: 20060101
  2. YASMIN [Suspect]
     Indication: CONTRACEPTION
     Dosage: UNK
     Route: 048
     Dates: start: 20060601, end: 20060801

REACTIONS (7)
  - TREMOR [None]
  - BRAIN STEM HAEMORRHAGE [None]
  - SPEECH DISORDER [None]
  - BLINDNESS UNILATERAL [None]
  - CEREBROVASCULAR ACCIDENT [None]
  - INTRAVENTRICULAR HAEMORRHAGE [None]
  - PAIN [None]
